FAERS Safety Report 17488539 (Version 3)
Quarter: 2020Q3

REPORT INFORMATION
  Report Type: Report from Study
  Country: FR (occurrence: FR)
  Receive Date: 20200303
  Receipt Date: 20200717
  Transmission Date: 20201102
  Serious: Yes (Hospitalization)
  Sender: FDA-Public Use
  Company Number: FR-ROCHE-2553544

PATIENT
  Age: 65 Year
  Sex: Female
  Weight: 60 kg

DRUGS (124)
  1. CETIRIZINE [Concomitant]
     Active Substance: CETIRIZINE HYDROCHLORIDE
     Dates: start: 20180905, end: 20180905
  2. CETIRIZINE [Concomitant]
     Active Substance: CETIRIZINE HYDROCHLORIDE
     Dates: start: 20150922, end: 20150922
  3. CETIRIZINE [Concomitant]
     Active Substance: CETIRIZINE HYDROCHLORIDE
     Dates: start: 20151124, end: 20151124
  4. METHYLPREDNISOLONE. [Concomitant]
     Active Substance: METHYLPREDNISOLONE
     Dates: start: 20161020, end: 20161020
  5. POLARAMINE [Concomitant]
     Active Substance: DEXCHLORPHENIRAMINE MALEATE
     Dates: start: 20121220, end: 20121220
  6. AUGMENTIN [Concomitant]
     Active Substance: AMOXICILLIN\CLAVULANATE POTASSIUM
     Indication: BRONCHITIS
  7. DOMPERIDONE [Concomitant]
     Active Substance: DOMPERIDONE
     Indication: NAUSEA
     Dates: start: 20120704, end: 20120707
  8. OMEPRAZOLE. [Concomitant]
     Active Substance: OMEPRAZOLE
     Dates: start: 20150922, end: 20161001
  9. TIORFAN [Concomitant]
     Active Substance: RACECADOTRIL
     Indication: PROPHYLAXIS AGAINST DIARRHOEA
     Dates: start: 20200203, end: 20200211
  10. PARACETAMOL [Concomitant]
     Active Substance: ACETAMINOPHEN
     Dates: start: 20120703, end: 20120703
  11. PARACETAMOL [Concomitant]
     Active Substance: ACETAMINOPHEN
     Dates: start: 20171003, end: 20171003
  12. PARACETAMOL [Concomitant]
     Active Substance: ACETAMINOPHEN
     Dates: start: 20161020, end: 20161020
  13. PARACETAMOL [Concomitant]
     Active Substance: ACETAMINOPHEN
     Dates: start: 20141021, end: 20141021
  14. PARACETAMOL [Concomitant]
     Active Substance: ACETAMINOPHEN
     Dates: start: 20151124, end: 20151124
  15. DAFALGAN [Concomitant]
     Active Substance: ACETAMINOPHEN
     Indication: NEURALGIA
     Dates: start: 20180905, end: 20180905
  16. DAFALGAN [Concomitant]
     Active Substance: ACETAMINOPHEN
     Dates: start: 20140507, end: 20140507
  17. DOLIPRANE [Concomitant]
     Active Substance: ACETAMINOPHEN
     Dates: start: 20151208, end: 20151208
  18. CETIRIZINE [Concomitant]
     Active Substance: CETIRIZINE HYDROCHLORIDE
     Dates: start: 20160524, end: 20160524
  19. CETIRIZINE [Concomitant]
     Active Substance: CETIRIZINE HYDROCHLORIDE
     Dates: start: 20190730, end: 20190730
  20. METHYLPREDNISOLONE. [Concomitant]
     Active Substance: METHYLPREDNISOLONE
     Dates: start: 20141104, end: 20141104
  21. METHYLPREDNISOLONE. [Concomitant]
     Active Substance: METHYLPREDNISOLONE
     Dates: start: 20180905, end: 20180905
  22. METHYLPREDNISOLONE. [Concomitant]
     Active Substance: METHYLPREDNISOLONE
     Dates: start: 20151006, end: 20151006
  23. METHYLPREDNISOLONE. [Concomitant]
     Active Substance: METHYLPREDNISOLONE
     Dates: start: 20120717, end: 20120717
  24. METHYLPREDNISOLONE. [Concomitant]
     Active Substance: METHYLPREDNISOLONE
     Dates: start: 20150922, end: 20150922
  25. METHYLPREDNISOLONE. [Concomitant]
     Active Substance: METHYLPREDNISOLONE
     Dates: start: 20160524, end: 20160524
  26. METHYLPREDNISOLONE. [Concomitant]
     Active Substance: METHYLPREDNISOLONE
     Dates: start: 20151124, end: 20151124
  27. AMOXICILLINE [Concomitant]
     Active Substance: AMOXICILLIN
     Dates: start: 20170925, end: 20171002
  28. AUGMENTIN [Concomitant]
     Active Substance: AMOXICILLIN\CLAVULANATE POTASSIUM
     Indication: INFLUENZA
     Dates: start: 20200203, end: 20200211
  29. BROMAZEPAM [Concomitant]
     Active Substance: BROMAZEPAM
     Dates: start: 20110525, end: 20120924
  30. QVAR [Concomitant]
     Active Substance: BECLOMETHASONE DIPROPIONATE
     Indication: BRONCHITIS
  31. DAFALGAN [Concomitant]
     Active Substance: ACETAMINOPHEN
     Dates: start: 20170406, end: 20170406
  32. DOLIPRANE [Concomitant]
     Active Substance: ACETAMINOPHEN
     Dates: start: 20150922, end: 20150922
  33. CETIRIZINE [Concomitant]
     Active Substance: CETIRIZINE HYDROCHLORIDE
     Dates: start: 20140520, end: 20140520
  34. CETIRIZINE [Concomitant]
     Active Substance: CETIRIZINE HYDROCHLORIDE
     Dates: start: 20151208, end: 20151208
  35. METHYLPREDNISOLONE. [Concomitant]
     Active Substance: METHYLPREDNISOLONE
     Dates: start: 20150505, end: 20150505
  36. METHYLPREDNISOLONE. [Concomitant]
     Active Substance: METHYLPREDNISOLONE
     Dates: start: 20151208, end: 20151208
  37. METHYLPREDNISOLONE. [Concomitant]
     Active Substance: METHYLPREDNISOLONE
     Dates: start: 20160510, end: 20160510
  38. METHYLPREDNISOLONE. [Concomitant]
     Active Substance: METHYLPREDNISOLONE
     Dates: start: 20180313, end: 20190313
  39. METHYLPREDNISOLONE. [Concomitant]
     Active Substance: METHYLPREDNISOLONE
     Dates: start: 20141021, end: 20141021
  40. AMOXICILLINE [Concomitant]
     Active Substance: AMOXICILLIN
     Indication: NASOPHARYNGITIS
     Dates: start: 20130114, end: 20130121
  41. BECLOMETHASONE [Concomitant]
     Active Substance: BECLOMETHASONE
     Indication: INFLUENZA
     Dates: start: 20200203, end: 20200211
  42. DOMPERIDONE [Concomitant]
     Active Substance: DOMPERIDONE
     Dates: start: 20120720
  43. OMEPRAZOLE. [Concomitant]
     Active Substance: OMEPRAZOLE
     Indication: GASTROOESOPHAGEAL REFLUX PROPHYLAXIS
     Dates: start: 20161002
  44. PARACETAMOL [Concomitant]
     Active Substance: ACETAMINOPHEN
     Dates: start: 20120717, end: 20120717
  45. PARACETAMOL [Concomitant]
     Active Substance: ACETAMINOPHEN
     Dates: start: 20160524, end: 20160524
  46. DOLIPRANE [Concomitant]
     Active Substance: ACETAMINOPHEN
     Dates: start: 20140506, end: 20140506
  47. CETIRIZINE [Concomitant]
     Active Substance: CETIRIZINE HYDROCHLORIDE
     Dates: start: 20171003, end: 20171003
  48. CETIRIZINE [Concomitant]
     Active Substance: CETIRIZINE HYDROCHLORIDE
     Dates: start: 20160510, end: 20160510
  49. CETIRIZINE [Concomitant]
     Active Substance: CETIRIZINE HYDROCHLORIDE
     Dates: start: 20190213, end: 20190213
  50. CETIRIZINE [Concomitant]
     Active Substance: CETIRIZINE HYDROCHLORIDE
     Dates: start: 20141021, end: 20141021
  51. CETIRIZINE [Concomitant]
     Active Substance: CETIRIZINE HYDROCHLORIDE
     Dates: start: 20140520, end: 20140520
  52. METHYLPREDNISOLONE. [Concomitant]
     Active Substance: METHYLPREDNISOLONE
     Dates: start: 20120703, end: 20120703
  53. METHYLPREDNISOLONE. [Concomitant]
     Active Substance: METHYLPREDNISOLONE
     Dates: start: 20130108, end: 20130108
  54. METHYLPREDNISOLONE. [Concomitant]
     Active Substance: METHYLPREDNISOLONE
     Dates: start: 20130618, end: 20130618
  55. METHYLPREDNISOLONE. [Concomitant]
     Active Substance: METHYLPREDNISOLONE
     Dates: start: 20131119, end: 20131119
  56. METHYLPREDNISOLONE. [Concomitant]
     Active Substance: METHYLPREDNISOLONE
     Dates: start: 20121220, end: 20121220
  57. POLARAMINE [Concomitant]
     Active Substance: DEXCHLORPHENIRAMINE MALEATE
     Dates: start: 20120717, end: 20120717
  58. BECLOMETHASONE [Concomitant]
     Active Substance: BECLOMETHASONE
     Indication: BRONCHITIS
     Dosage: 6 PUFF
     Dates: start: 20160321, end: 20160415
  59. BROMAZEPAM [Concomitant]
     Active Substance: BROMAZEPAM
     Indication: ANXIETY
     Dates: start: 20130201, end: 20170306
  60. BROMAZEPAM [Concomitant]
     Active Substance: BROMAZEPAM
     Dates: start: 20170703
  61. PARACETAMOL [Concomitant]
     Active Substance: ACETAMINOPHEN
     Dates: start: 20120704, end: 20120707
  62. PARACETAMOL [Concomitant]
     Active Substance: ACETAMINOPHEN
     Dates: start: 20181120, end: 20190106
  63. DAFALGAN [Concomitant]
     Active Substance: ACETAMINOPHEN
     Dates: start: 20200120, end: 20200120
  64. DAFALGAN [Concomitant]
     Active Substance: ACETAMINOPHEN
     Dates: start: 20190730, end: 20190730
  65. DAFALGAN [Concomitant]
     Active Substance: ACETAMINOPHEN
     Dates: start: 20130604, end: 20130604
  66. DAFALGAN [Concomitant]
     Active Substance: ACETAMINOPHEN
     Dates: start: 20161209, end: 20170609
  67. OCRELIZUMAB. [Suspect]
     Active Substance: OCRELIZUMAB
     Indication: PRIMARY PROGRESSIVE MULTIPLE SCLEROSIS
     Dosage: ON 21/JAN/2020, RECEIVED MOST RECENT DOSE OF OCRELIZUMAB.?FIRST 24 WEEK CYCLES AND THEN SINGLE INFUS
     Route: 042
     Dates: start: 20151124
  68. CETIRIZINE [Concomitant]
     Active Substance: CETIRIZINE HYDROCHLORIDE
     Dates: start: 20141104, end: 20141104
  69. METHYLPREDNISOLONE. [Concomitant]
     Active Substance: METHYLPREDNISOLONE
     Dates: start: 20171003, end: 20171003
  70. METHYLPREDNISOLONE. [Concomitant]
     Active Substance: METHYLPREDNISOLONE
     Dates: start: 20170406, end: 20170406
  71. METHYLPREDNISOLONE. [Concomitant]
     Active Substance: METHYLPREDNISOLONE
     Dates: start: 20140506, end: 20140506
  72. METHYLPREDNISOLONE. [Concomitant]
     Active Substance: METHYLPREDNISOLONE
     Dates: start: 20190730
  73. AMOXICILLINE [Concomitant]
     Active Substance: AMOXICILLIN
     Dates: start: 20140228, end: 20140307
  74. AUGMENTIN [Concomitant]
     Active Substance: AMOXICILLIN\CLAVULANATE POTASSIUM
     Indication: COLITIS
     Dates: start: 20191204, end: 20191213
  75. ONDANSETRON [Concomitant]
     Active Substance: ONDANSETRON
     Dates: start: 20151124
  76. QVAR [Concomitant]
     Active Substance: BECLOMETHASONE DIPROPIONATE
     Indication: ASTHMA
     Dates: start: 20140124, end: 20140202
  77. PARACETAMOL [Concomitant]
     Active Substance: ACETAMINOPHEN
     Dates: start: 20150505, end: 20150505
  78. PARACETAMOL [Concomitant]
     Active Substance: ACETAMINOPHEN
     Dates: start: 20120718, end: 20120719
  79. DOLIPRANE [Concomitant]
     Active Substance: ACETAMINOPHEN
     Dates: start: 20151006, end: 20151006
  80. DOLIPRANE [Concomitant]
     Active Substance: ACETAMINOPHEN
     Dates: start: 20121220, end: 20121220
  81. PLACEBO [Suspect]
     Active Substance: UNSPECIFIED INGREDIENT
     Indication: PRIMARY PROGRESSIVE MULTIPLE SCLEROSIS
     Route: 065
  82. CETIRIZINE [Concomitant]
     Active Substance: CETIRIZINE HYDROCHLORIDE
     Dates: start: 20161020, end: 20161020
  83. METHYLPREDNISOLONE. [Concomitant]
     Active Substance: METHYLPREDNISOLONE
     Dates: start: 20200120, end: 20200120
  84. POLARAMINE [Concomitant]
     Active Substance: DEXCHLORPHENIRAMINE MALEATE
     Dates: start: 20131203, end: 20131203
  85. POLARAMINE [Concomitant]
     Active Substance: DEXCHLORPHENIRAMINE MALEATE
     Dates: start: 20130801, end: 20130801
  86. AMOXICILLINE [Concomitant]
     Active Substance: AMOXICILLIN
     Indication: BRONCHITIS
     Dates: start: 20151012, end: 20151019
  87. AMOXICILLINE [Concomitant]
     Active Substance: AMOXICILLIN
     Indication: INFLUENZA
     Dates: start: 20170114, end: 20170118
  88. AMOXICILLINE [Concomitant]
     Active Substance: AMOXICILLIN
     Indication: URINARY TRACT INFECTION
     Dates: start: 20140121, end: 20140121
  89. AUGMENTIN [Concomitant]
     Active Substance: AMOXICILLIN\CLAVULANATE POTASSIUM
     Indication: TOOTH INFECTION
     Dates: start: 20150421, end: 20150501
  90. BROMAZEPAM [Concomitant]
     Active Substance: BROMAZEPAM
     Dates: start: 20120925, end: 20130131
  91. PARACETAMOL [Concomitant]
     Active Substance: ACETAMINOPHEN
     Dates: start: 20130618, end: 20130618
  92. DAFALGAN [Concomitant]
     Active Substance: ACETAMINOPHEN
     Dates: start: 20190213, end: 20190213
  93. DAFALGAN [Concomitant]
     Active Substance: ACETAMINOPHEN
     Dates: start: 20190730, end: 20190730
  94. DAFALGAN [Concomitant]
     Active Substance: ACETAMINOPHEN
     Dates: start: 20131203, end: 20131203
  95. DOLIPRANE [Concomitant]
     Active Substance: ACETAMINOPHEN
     Dates: start: 20141104, end: 20141104
  96. DOLIPRANE [Concomitant]
     Active Substance: ACETAMINOPHEN
     Dates: start: 20131119, end: 20131119
  97. CETIRIZINE [Concomitant]
     Active Substance: CETIRIZINE HYDROCHLORIDE
     Dates: start: 20151006, end: 20151006
  98. METHYLPREDNISOLONE. [Concomitant]
     Active Substance: METHYLPREDNISOLONE
     Dates: start: 20130604, end: 20130604
  99. POLARAMINE [Concomitant]
     Active Substance: DEXCHLORPHENIRAMINE MALEATE
     Dates: start: 20130604, end: 20130604
  100. POLARAMINE [Concomitant]
     Active Substance: DEXCHLORPHENIRAMINE MALEATE
     Dates: start: 20130618, end: 20130618
  101. POLARAMINE [Concomitant]
     Active Substance: DEXCHLORPHENIRAMINE MALEATE
     Dates: start: 20131119, end: 20131119
  102. AMOXICILLINE [Concomitant]
     Active Substance: AMOXICILLIN
     Indication: INFLUENZA
     Dates: start: 20200203, end: 20200211
  103. AMOXICILLINE [Concomitant]
     Active Substance: AMOXICILLIN
     Indication: COLITIS
     Dates: start: 20190321, end: 20190321
  104. ONDANSETRON [Concomitant]
     Active Substance: ONDANSETRON
     Indication: NAUSEA
     Dates: start: 20150922, end: 20150925
  105. PARACETAMOL [Concomitant]
     Active Substance: ACETAMINOPHEN
     Dates: start: 20160510, end: 20160510
  106. DAFALGAN [Concomitant]
     Active Substance: ACETAMINOPHEN
     Dates: start: 20180313, end: 20180313
  107. DOLIPRANE [Concomitant]
     Active Substance: ACETAMINOPHEN
     Dates: start: 20140520, end: 20140520
  108. CETIRIZINE [Concomitant]
     Active Substance: CETIRIZINE HYDROCHLORIDE
     Dates: start: 20150505, end: 20150505
  109. CETIRIZINE [Concomitant]
     Active Substance: CETIRIZINE HYDROCHLORIDE
     Dates: start: 20170406, end: 20170406
  110. CETIRIZINE [Concomitant]
     Active Substance: CETIRIZINE HYDROCHLORIDE
     Dates: start: 20140506, end: 20140506
  111. CETIRIZINE [Concomitant]
     Active Substance: CETIRIZINE HYDROCHLORIDE
     Dates: start: 20180313, end: 20180313
  112. CETIRIZINE [Concomitant]
     Active Substance: CETIRIZINE HYDROCHLORIDE
     Dates: start: 20200120, end: 20200120
  113. METHYLPREDNISOLONE. [Concomitant]
     Active Substance: METHYLPREDNISOLONE
     Dates: start: 20131203, end: 20131203
  114. METHYLPREDNISOLONE. [Concomitant]
     Active Substance: METHYLPREDNISOLONE
     Dates: start: 20190213, end: 20190213
  115. METHYLPREDNISOLONE. [Concomitant]
     Active Substance: METHYLPREDNISOLONE
     Dates: start: 20140520, end: 20140520
  116. POLARAMINE [Concomitant]
     Active Substance: DEXCHLORPHENIRAMINE MALEATE
     Dates: start: 20120703, end: 20120703
  117. ACUPAN [Concomitant]
     Active Substance: NEFOPAM HYDROCHLORIDE
     Indication: COLITIS
     Dates: start: 20190321, end: 20190321
  118. AMOXICILLINE [Concomitant]
     Active Substance: AMOXICILLIN
     Indication: URINARY TRACT INFECTION
     Dates: start: 20160321, end: 20160329
  119. AMOXICILLINE [Concomitant]
     Active Substance: AMOXICILLIN
     Dates: start: 20150330, end: 20150604
  120. TIORFAN [Concomitant]
     Active Substance: RACECADOTRIL
     Indication: GASTROENTERITIS
     Dates: start: 20150101, end: 20150101
  121. TIORFAN [Concomitant]
     Active Substance: RACECADOTRIL
     Indication: COLITIS
     Dates: start: 20190321, end: 20190331
  122. TIORFAN [Concomitant]
     Active Substance: RACECADOTRIL
     Dates: start: 20131230, end: 20131231
  123. PARACETAMOL [Concomitant]
     Active Substance: ACETAMINOPHEN
     Dates: start: 20140228, end: 20140228
  124. DOLIPRANE [Concomitant]
     Active Substance: ACETAMINOPHEN
     Dates: start: 20130801, end: 20130801

REACTIONS (1)
  - Diverticulitis [Not Recovered/Not Resolved]

NARRATIVE: CASE EVENT DATE: 20200212
